FAERS Safety Report 7605634-9 (Version None)
Quarter: 2011Q3

REPORT INFORMATION
  Report Type: 
  Country: None (occurrence: None)
  Receive Date: 20110713
  Receipt Date: 20110713
  Transmission Date: 20111222
  Serious: Yes (Other)
  Sender: FDA-Public Use
  Company Number: None

PATIENT
  Sex: Female
  Weight: 22.679 kg

DRUGS (1)
  1. GELNIQUE [Suspect]
     Indication: HYPERTONIC BLADDER
     Dosage: 1 PACKET
     Route: 061
     Dates: start: 20101120, end: 20110513

REACTIONS (4)
  - HALLUCINATION, TACTILE [None]
  - SCREAMING [None]
  - HALLUCINATION, VISUAL [None]
  - DRUG INEFFECTIVE [None]
